FAERS Safety Report 21826199 (Version 2)
Quarter: 2023Q1

REPORT INFORMATION
  Report Type: Spontaneous
  Country: US (occurrence: US)
  Receive Date: 20230106
  Receipt Date: 20230203
  Transmission Date: 20230417
  Serious: No
  Sender: FDA-Public Use
  Company Number: US-drreddys-SPO/USA/22/0158611

PATIENT
  Age: 83 Year
  Sex: Male

DRUGS (9)
  1. LENALIDOMIDE [Suspect]
     Active Substance: LENALIDOMIDE
     Indication: Plasma cell myeloma
     Dosage: 1 CAPSULE BY MOUTH EVERY DAY FOR 21 DAYS FOLLOWED BY 7 DAYS OFF
     Route: 048
     Dates: start: 20221109
  2. ELIQUIS [Concomitant]
     Active Substance: APIXABAN
     Indication: Product used for unknown indication
  3. ACYCLOVIR [Concomitant]
     Active Substance: ACYCLOVIR
     Indication: Product used for unknown indication
  4. CALCIUM CHE 600-400MG-UNI [Concomitant]
     Indication: Product used for unknown indication
     Dosage: 600-400MG-UNI
  5. DEXAMETHASONE [Concomitant]
     Active Substance: DEXAMETHASONE
     Indication: Product used for unknown indication
  6. KLOR-CON M20 TBC 20MEQ [Concomitant]
     Indication: Product used for unknown indication
  7. OLMESARTAN-A TAB 40-5-12 [Concomitant]
     Indication: Product used for unknown indication
  8. VITAMIN B 12 TAB 500MCG [Concomitant]
     Indication: Product used for unknown indication
  9. VITAMIN K TAB 100MCG [Concomitant]
     Indication: Product used for unknown indication

REACTIONS (3)
  - Weight abnormal [Unknown]
  - Influenza [Not Recovered/Not Resolved]
  - Fatigue [Unknown]
